FAERS Safety Report 4829063-6 (Version None)
Quarter: 2005Q4

REPORT INFORMATION
  Report Type: 
  Country: None (occurrence: None)
  Receive Date: 20051031
  Receipt Date: 20050202
  Transmission Date: 20060501
  Serious: Yes (Other)
  Sender: FDA-Public Use
  Company Number: 200510511US

PATIENT
  Age: 68 Year
  Sex: Female
  Weight: 93.6 kg

DRUGS (2)
  1. ARAVA [Suspect]
     Indication: RHEUMATOID ARTHRITIS
     Dosage: 10 MG 3XW
  2. ARAVA [Suspect]
     Indication: RHEUMATOID ARTHRITIS
     Dosage: 20 MG 3XW
     Dates: start: 20041103, end: 20050119

REACTIONS (3)
  - BLOOD CHOLESTEROL INCREASED [None]
  - DIARRHOEA [None]
  - HYPERTENSION [None]
